FAERS Safety Report 4467735-6 (Version None)
Quarter: 2004Q4

REPORT INFORMATION
  Report Type: 
  Country: None (occurrence: None)
  Receive Date: 20041001
  Receipt Date: 20040915
  Transmission Date: 20050328
  Serious: Yes (Life-Threatening, Hospitalization)
  Sender: FDA-Public Use
  Company Number: 10061949-NA01-1

PATIENT
  Age: 6 Year
  Sex: Male
  Weight: 24.1 kg

DRUGS (5)
  1. TRAVASOL 10% [Suspect]
     Indication: MALABSORPTION
     Dosage: 31 GM, OVER 1 HOURS, IV
     Route: 042
     Dates: start: 20040422
  2. INTRALIPID 10% [Suspect]
     Indication: MALABSORPTION
     Dosage: 3220ML, OVER 13 HOURS, IV
     Route: 042
     Dates: start: 20040422, end: 20040915
  3. 7% DEXTROSE [Concomitant]
  4. 3/4 NORMAL SALINE [Concomitant]
  5. POTASSIUM ACETATE [Concomitant]

REACTIONS (3)
  - HAEMORRHAGE [None]
  - HYPERBILIRUBINAEMIA [None]
  - LIVER FUNCTION TEST ABNORMAL [None]
